FAERS Safety Report 21031365 (Version 1)
Quarter: 2022Q3

REPORT INFORMATION
  Report Type: Other
  Country: US (occurrence: None)
  Receive Date: 20220701
  Receipt Date: 20220701
  Transmission Date: 20221027
  Serious: Yes (Other)
  Sender: FDA-Public Use
  Company Number: US-ROCHE-3125119

PATIENT
  Sex: Female
  Weight: 54.026 kg

DRUGS (1)
  1. OCREVUS [Suspect]
     Active Substance: OCRELIZUMAB
     Indication: Relapsing multiple sclerosis
     Dosage: YES; SUBSEQUENTLY 600MG FOR EVERY 6 MONTHS.
     Route: 042
     Dates: start: 20211019

REACTIONS (1)
  - Urinary tract infection [Recovered/Resolved]
